FAERS Safety Report 17690238 (Version 2)
Quarter: 2020Q3

REPORT INFORMATION
  Report Type: Spontaneous
  Country: US (occurrence: US)
  Receive Date: 20200421
  Receipt Date: 20200731
  Transmission Date: 20201102
  Serious: No
  Sender: FDA-Public Use
  Company Number: US-PARATEK PHARMACEUTICALS, INC.-2020PTK00013

PATIENT
  Age: 40 Year
  Sex: Female

DRUGS (10)
  1. IBUPROFEN. [Concomitant]
     Active Substance: IBUPROFEN
  2. NUZYRA [Suspect]
     Active Substance: OMADACYCLINE
     Indication: ABSCESS BACTERIAL
     Dosage: 300 MG, 1X/DAY
     Route: 048
     Dates: start: 20191109, end: 202001
  3. NUZYRA [Suspect]
     Active Substance: OMADACYCLINE
     Indication: PATHOGEN RESISTANCE
     Dosage: 300 MG, 1X/DAY
     Route: 048
     Dates: start: 20200205
  4. BENADRYL [Concomitant]
     Active Substance: DIPHENHYDRAMINE HYDROCHLORIDE
  5. HYDROCORTISONE. [Concomitant]
     Active Substance: HYDROCORTISONE
  6. ZOFRAN [Concomitant]
     Active Substance: ONDANSETRON HYDROCHLORIDE
  7. NUZYRA [Suspect]
     Active Substance: OMADACYCLINE
     Indication: ABSCESS
  8. NUZYRA [Suspect]
     Active Substance: OMADACYCLINE
     Indication: DERMATITIS INFECTED
     Dosage: 450 MG, 1X/DAY
     Route: 048
     Dates: start: 20191107, end: 20191108
  9. NUZYRA [Suspect]
     Active Substance: OMADACYCLINE
     Indication: CELLULITIS
  10. TYLENOL [Concomitant]
     Active Substance: ACETAMINOPHEN

REACTIONS (3)
  - Therapeutic product effect incomplete [Not Recovered/Not Resolved]
  - Incorrect product administration duration [Recovered/Resolved]
  - Drug dose titration not performed [Unknown]

NARRATIVE: CASE EVENT DATE: 201911
